FAERS Safety Report 23187526 (Version 1)
Quarter: 2023Q4

REPORT INFORMATION
  Report Type: Spontaneous
  Country: GB (occurrence: GB)
  Receive Date: 20231115
  Receipt Date: 20231115
  Transmission Date: 20240109
  Serious: Yes (Hospitalization)
  Sender: FDA-Public Use
  Company Number: GB-ACRAF SpA-2023-032409

PATIENT
  Age: 28 Year
  Sex: Male

DRUGS (7)
  1. PHENYTOIN [Interacting]
     Active Substance: PHENYTOIN
     Indication: Product used for unknown indication
     Dosage: 400 MILLIGRAM DAILY; UNIT DOSE : 200 MG, BD
     Route: 065
  2. PHENYTOIN [Interacting]
     Active Substance: PHENYTOIN
     Dosage: 250 MILLIGRAM DAILY; UNIT DOSE : 125 MG, BD
     Route: 065
  3. CENOBAMATE [Interacting]
     Active Substance: CENOBAMATE
     Indication: Partial seizures
     Dosage: 25 MILLIGRAM DAILY; 25 MILLIGRAM DAILY, THERAPY END DATE : NASK
     Route: 048
     Dates: start: 202304
  4. CENOBAMATE [Interacting]
     Active Substance: CENOBAMATE
     Dosage: FREQUENCY : OD
     Route: 048
  5. CLOBAZAM [Concomitant]
     Active Substance: CLOBAZAM
     Indication: Product used for unknown indication
     Dosage: 40 MILLIGRAM DAILY; 20MG TWICE A DAY
     Route: 065
  6. LACOSAMIDE [Concomitant]
     Active Substance: LACOSAMIDE
     Indication: Product used for unknown indication
     Dosage: 400 MILLIGRAM DAILY; 200MG TWICE A DAY,
     Route: 065
  7. LEVETIRACETAM [Concomitant]
     Active Substance: LEVETIRACETAM
     Indication: Product used for unknown indication
     Dosage: 3000 MILLIGRAM DAILY; 1500MG TWICE A DAY
     Route: 065

REACTIONS (3)
  - Drug titration error [Unknown]
  - Toxicity to various agents [Unknown]
  - Drug interaction [Unknown]

NARRATIVE: CASE EVENT DATE: 20230401
